FAERS Safety Report 7250527-2 (Version None)
Quarter: 2011Q1

REPORT INFORMATION
  Report Type: 
  Country: None (occurrence: None)
  Receive Date: 20110128
  Receipt Date: 20110124
  Transmission Date: 20110831
  Serious: Yes (Death)
  Sender: FDA-Public Use
  Company Number: PHHY2011US05585

PATIENT

DRUGS (1)
  1. EXFORGE [Suspect]
     Dosage: 10/320 MG

REACTIONS (1)
  - DEATH [None]
